FAERS Safety Report 8639413 (Version 2)
Quarter: 2013Q2

REPORT INFORMATION
  Report Type: Spontaneous
  Country: US (occurrence: US)
  Receive Date: 20120627
  Receipt Date: 20130408
  Transmission Date: 20140414
  Serious: Yes (Other)
  Sender: FDA-Public Use
  Company Number: US-JNJFOC-20120611615

PATIENT
  Sex: 0

DRUGS (4)
  1. DARUNAVIR [Suspect]
     Indication: HIV INFECTION
     Route: 065
  2. ATAZANAVIR [Suspect]
     Indication: HIV INFECTION
     Route: 065
  3. FOSAMPRENAVIR [Suspect]
     Indication: HIV INFECTION
     Route: 065
  4. LOPINAVIR [Suspect]
     Indication: HIV INFECTION
     Route: 065

REACTIONS (5)
  - Diabetes mellitus [Not Recovered/Not Resolved]
  - Gastrointestinal disorder [Not Recovered/Not Resolved]
  - Lipids abnormal [Not Recovered/Not Resolved]
  - Jaundice [Not Recovered/Not Resolved]
  - Rash [Not Recovered/Not Resolved]
